FAERS Safety Report 16898049 (Version 1)
Quarter: 2019Q4

REPORT INFORMATION
  Report Type: Spontaneous
  Country: US (occurrence: US)
  Receive Date: 20191009
  Receipt Date: 20191009
  Transmission Date: 20200122
  Serious: No
  Sender: FDA-Public Use
  Company Number: US-BAYER-2019-179296

PATIENT
  Sex: Female
  Weight: 77.11 kg

DRUGS (1)
  1. MIRALAX [Suspect]
     Active Substance: POLYETHYLENE GLYCOL 3350
     Dosage: UNK, QD
     Route: 048

REACTIONS (3)
  - Abnormal faeces [None]
  - Frequent bowel movements [None]
  - Incorrect dose administered [Unknown]
